FAERS Safety Report 20181174 (Version 2)
Quarter: 2022Q1

REPORT INFORMATION
  Report Type: Report from Study
  Country: US (occurrence: US)
  Receive Date: 20211214
  Receipt Date: 20220114
  Transmission Date: 20220424
  Serious: Yes (Death)
  Sender: FDA-Public Use
  Company Number: US-UCBSA-2021057138

PATIENT
  Age: 86 Year
  Sex: Female

DRUGS (1)
  1. ROTIGOTINE [Suspect]
     Active Substance: ROTIGOTINE
     Indication: Parkinson^s disease
     Dosage: 6 MILLIGRAM, ONCE DAILY (QD)
     Dates: end: 20211125

REACTIONS (2)
  - Parkinson^s disease [Fatal]
  - Dementia [Fatal]

NARRATIVE: CASE EVENT DATE: 20211125
